FAERS Safety Report 8996072 (Version 1)
Quarter: 2013Q1

REPORT INFORMATION
  Report Type: Spontaneous
  Country: US (occurrence: US)
  Receive Date: 20130103
  Receipt Date: 20130103
  Transmission Date: 20140127
  Serious: No
  Sender: FDA-Public Use
  Company Number: US-ABBOTT-12P-163-0933205-00

PATIENT
  Sex: Female
  Weight: 54.48 kg

DRUGS (4)
  1. SYNTHROID [Suspect]
     Indication: HYPOTHYROIDISM
     Dosage: 88 5 DAYS/ WEEK, 75 2 DAYS/WEEK
     Route: 048
     Dates: start: 2002, end: 201011
  2. SYNTHROID [Suspect]
     Dates: start: 201011
  3. SYNTHROID 88 MCG [Suspect]
     Indication: HYPOTHYROIDISM
     Dates: start: 201011
  4. GLUCOSAMINE CHONDROITIN [Concomitant]
     Indication: PRODUCT USED FOR UNKNOWN INDICATION

REACTIONS (4)
  - Feeling abnormal [Recovered/Resolved]
  - Nervousness [Recovered/Resolved]
  - Blood thyroid stimulating hormone increased [Recovered/Resolved]
  - Blood thyroid stimulating hormone decreased [Recovered/Resolved]
